FAERS Safety Report 7397820-0 (Version None)
Quarter: 2011Q2

REPORT INFORMATION
  Report Type: 
  Country: None (occurrence: None)
  Receive Date: 20110406
  Receipt Date: 20110405
  Transmission Date: 20111010
  Serious: Yes (Other)
  Sender: FDA-Public Use
  Company Number: GB-NAPPMUNDI-GBR-2011-0007815

PATIENT
  Age: 50 Year
  Sex: Male

DRUGS (4)
  1. OXYCODONE HYDROCHLORIDE [Suspect]
     Dosage: 120 MG, DAILY
     Route: 048
  2. DIAZEPAM [Concomitant]
     Dosage: UNK
     Route: 065
  3. ZOPICLONE [Concomitant]
     Dosage: UNK
     Route: 065
  4. OXYCODONE HYDROCHLORIDE [Suspect]
     Indication: DRUG DEPENDENCE
     Dosage: 70 MG, DAILY
     Route: 048

REACTIONS (2)
  - DRUG DEPENDENCE [None]
  - DRUG ABUSE [None]
